FAERS Safety Report 8182177 (Version 3)
Quarter: 2013Q1

REPORT INFORMATION
  Report Type: Spontaneous
  Country: FR (occurrence: FR)
  Receive Date: 20111014
  Receipt Date: 20130114
  Transmission Date: 20140127
  Serious: Yes (Hospitalization)
  Sender: FDA-Public Use
  Company Number: FR-NOVOPROD-336728

PATIENT
  Age: 63 Year
  Sex: Male
  Weight: 96 kg

DRUGS (10)
  1. VICTOZA [Suspect]
     Indication: TYPE 2 DIABETES MELLITUS
     Dosage: 0.6 MG, QD
     Route: 058
     Dates: start: 20101008, end: 20101018
  2. VICTOZA [Suspect]
     Dosage: 1.2 MG, QD
     Route: 058
  3. VICTOZA [Suspect]
     Dosage: 1.8 MG, QD
     Route: 058
  4. STAGID [Concomitant]
     Dosage: 2.1 G, QD
     Route: 048
     Dates: start: 2005
  5. DIAMICRON [Concomitant]
     Dosage: 30 MG, QD
     Dates: start: 2009
  6. AMLOR [Concomitant]
  7. CRESTOR [Concomitant]
     Dosage: 10 MG, QD
  8. COVERSYL                           /00790702/ [Concomitant]
  9. KARDEGIC [Concomitant]
     Dosage: 75 MG, QD
     Route: 048
     Dates: start: 2000
  10. LODOZ [Concomitant]
     Dosage: 10 MG, QD
     Route: 048

REACTIONS (2)
  - Pancreatitis necrotising [Recovering/Resolving]
  - Pancreatic pseudocyst [Recovering/Resolving]
